FAERS Safety Report 8394010-X (Version None)
Quarter: 2012Q2

REPORT INFORMATION
  Report Type: 
  Country: None (occurrence: None)
  Receive Date: 20120523
  Receipt Date: 20120510
  Transmission Date: 20120825
  Serious: Yes (Other)
  Sender: FDA-Public Use
  Company Number: 2012SA033955

PATIENT
  Age: 79 Year
  Sex: Female

DRUGS (1)
  1. GOLD BOND / UNKNOWN / UNKNOWN [Suspect]
     Indication: THERAPEUTIC SKIN CARE TOPICAL
     Dosage: , TOPICAL
     Route: 061

REACTIONS (4)
  - DERMATITIS [None]
  - APPLICATION SITE SCAR [None]
  - APPLICATION SITE REACTION [None]
  - RASH [None]
